FAERS Safety Report 4814192-3 (Version None)
Quarter: 2005Q4

REPORT INFORMATION
  Report Type: 
  Country: None (occurrence: None)
  Receive Date: 20051026
  Receipt Date: 20051010
  Transmission Date: 20060501
  Serious: Yes (Other)
  Sender: FDA-Public Use
  Company Number: USA0510110435

PATIENT
  Age: 16 Year
  Sex: Male

DRUGS (6)
  1. STRATTERA [Suspect]
     Indication: DISTURBANCE IN ATTENTION
     Dosage: 100 MG
     Dates: start: 20050501
  2. EFFEXOR XR [Concomitant]
  3. DEPAKOTE [Concomitant]
  4. NEXIUM [Concomitant]
  5. ALLEGRA [Concomitant]
  6. DEXTROAMPHETAMINE [Concomitant]

REACTIONS (4)
  - ANGER [None]
  - DRUG INEFFECTIVE [None]
  - MOOD ALTERED [None]
  - SUICIDE ATTEMPT [None]
